FAERS Safety Report 7408139-3 (Version None)
Quarter: 2011Q2

REPORT INFORMATION
  Report Type: 
  Country: None (occurrence: None)
  Receive Date: 20110412
  Receipt Date: 20110330
  Transmission Date: 20111010
  Serious: Yes (Death)
  Sender: FDA-Public Use
  Company Number: US-JNJFOC-20110403781

PATIENT
  Sex: Male

DRUGS (3)
  1. ATIVAN [Suspect]
     Indication: HALLUCINATION
     Route: 065
  2. HALDOL [Suspect]
     Indication: HALLUCINATION
     Route: 065
  3. ATIVAN [Suspect]
     Route: 065

REACTIONS (5)
  - NEURODEGENERATIVE DISORDER [None]
  - ASTHENIA [None]
  - FALL [None]
  - CONVULSION [None]
  - GENERAL PHYSICAL HEALTH DETERIORATION [None]
